FAERS Safety Report 19425992 (Version 3)
Quarter: 2021Q3

REPORT INFORMATION
  Report Type: Report from Study
  Country: US (occurrence: US)
  Receive Date: 20210616
  Receipt Date: 20210723
  Transmission Date: 20211014
  Serious: Yes (Hospitalization, Other)
  Sender: FDA-Public Use
  Company Number: US-BAYER-2021-155534

PATIENT
  Age: 53 Year
  Sex: Female
  Weight: 144.67 kg

DRUGS (2)
  1. PREDNISONE. [Concomitant]
     Active Substance: PREDNISONE
     Dosage: UNK
     Dates: end: 202106
  2. ADEMPAS [Suspect]
     Active Substance: RIOCIGUAT
     Indication: PULMONARY ARTERIAL HYPERTENSION
     Dosage: 0.5 MG, TID
     Route: 048
     Dates: start: 20210520

REACTIONS (25)
  - Dyspepsia [Not Recovered/Not Resolved]
  - Nausea [Not Recovered/Not Resolved]
  - Nasal congestion [None]
  - Chest pain [Not Recovered/Not Resolved]
  - Oxygen saturation decreased [None]
  - Diarrhoea [None]
  - Temperature intolerance [None]
  - Musculoskeletal chest pain [None]
  - Nervousness [None]
  - Product dose omission issue [None]
  - Hypotension [Not Recovered/Not Resolved]
  - Productive cough [None]
  - Back pain [None]
  - Abdominal distension [None]
  - Dizziness [Not Recovered/Not Resolved]
  - Dyspnoea [Not Recovered/Not Resolved]
  - Vomiting [None]
  - Abdominal pain [None]
  - Cough [None]
  - Fatigue [None]
  - Peripheral swelling [Not Recovered/Not Resolved]
  - Headache [Not Recovered/Not Resolved]
  - Blood glucose decreased [None]
  - Weight fluctuation [None]
  - Stress [None]

NARRATIVE: CASE EVENT DATE: 2021
